FAERS Safety Report 6850103-7 (Version None)
Quarter: 2010Q3

REPORT INFORMATION
  Report Type: 
  Country: None (occurrence: None)
  Receive Date: 20100716
  Receipt Date: 20071208
  Transmission Date: 20110219
  Serious: No
  Sender: FDA-Public Use
  Company Number: US-PFIZER INC-2007085406

PATIENT
  Sex: Male
  Weight: 83.5 kg

DRUGS (2)
  1. CHANTIX [Suspect]
     Indication: SMOKING CESSATION THERAPY
     Dates: start: 20070928, end: 20071004
  2. MULTI-VITAMINS [Concomitant]

REACTIONS (8)
  - AGITATION [None]
  - BACK PAIN [None]
  - CHILLS [None]
  - IRRITABILITY [None]
  - MOOD SWINGS [None]
  - NAUSEA [None]
  - RESPIRATORY DISORDER [None]
  - SLEEP TALKING [None]
